FAERS Safety Report 9173677 (Version 2)
Quarter: 2013Q2

REPORT INFORMATION
  Report Type: Spontaneous
  Country: PL (occurrence: None)
  Receive Date: 20130318
  Receipt Date: 20130516
  Transmission Date: 20140414
  Serious: Yes (Hospitalization)
  Sender: FDA-Public Use
  Company Number: 2013000044

PATIENT
  Age: 84 Year
  Sex: Female
  Weight: 60 kg

DRUGS (2)
  1. ACEON [Suspect]
     Indication: HYPERTENSION
     Route: 048
     Dates: start: 2010
  2. APAP [Suspect]
     Indication: HEADACHE
     Dosage: 500MG PRN ORAL

REACTIONS (4)
  - Abdominal pain [None]
  - Skin lesion [None]
  - Pain in extremity [None]
  - Headache [None]
